FAERS Safety Report 16068190 (Version 2)
Quarter: 2019Q2

REPORT INFORMATION
  Report Type: Spontaneous
  Country: GR (occurrence: GR)
  Receive Date: 20190313
  Receipt Date: 20190404
  Transmission Date: 20190711
  Serious: No
  Sender: FDA-Public Use
  Company Number: GR-PFIZER INC-2019107536

PATIENT
  Age: 66 Year
  Sex: Female

DRUGS (1)
  1. AZITHROMYCIN ANHYDROUS. [Suspect]
     Active Substance: AZITHROMYCIN ANHYDROUS
     Indication: CAT SCRATCH DISEASE
     Dosage: UNK (FOR 3 DAYS)

REACTIONS (1)
  - No adverse event [Recovered/Resolved]
